FAERS Safety Report 13741610 (Version 1)
Quarter: 2017Q3

REPORT INFORMATION
  Report Type: Spontaneous
  Country: US (occurrence: US)
  Receive Date: 20170711
  Receipt Date: 20170711
  Transmission Date: 20171127
  Serious: No
  Sender: FDA-Public Use
  Company Number: US-009507513-1706USA010975

PATIENT
  Age: 26 Year
  Sex: Female
  Weight: 83.9 kg

DRUGS (1)
  1. NEXPLANON [Suspect]
     Active Substance: ETONOGESTREL
     Indication: CONTRACEPTION
     Dosage: 1 ROD EVERY 3 YEARS IN HER ARM
     Route: 059
     Dates: start: 2015, end: 20170615

REACTIONS (4)
  - Headache [Unknown]
  - Device breakage [Recovered/Resolved]
  - Mood swings [Unknown]
  - Fungal infection [Unknown]

NARRATIVE: CASE EVENT DATE: 20170608
